FAERS Safety Report 8957404 (Version 1)
Quarter: 2012Q4

REPORT INFORMATION
  Report Type: 
  Country: US (occurrence: US)
  Receive Date: 20121210
  Receipt Date: 20121210
  Transmission Date: 20130627
  Serious: No
  Sender: FDA-Public Use
  Company Number: US-ASTELLAS-2012US009755

PATIENT
  Sex: Male

DRUGS (13)
  1. XTANDI [Suspect]
     Indication: PROSTATE CANCER
     Dosage: 160 mg, UID/QD
     Route: 048
     Dates: start: 201206, end: 201207
  2. XTANDI [Suspect]
     Dosage: 40 mg, UID/QD
     Route: 048
  3. LUPRON [Suspect]
     Indication: PRODUCT USED FOR UNKNOWN INDICATION
     Dosage: UNK
     Route: 065
  4. LIPITOR [Concomitant]
     Indication: PRODUCT USED FOR UNKNOWN INDICATION
     Dosage: 20 mg, UID/QD
     Route: 065
  5. DIGOXIN [Concomitant]
     Indication: PRODUCT USED FOR UNKNOWN INDICATION
     Dosage: 250 mg, UID/QD
     Route: 065
  6. WARFARIN SODIUM [Concomitant]
     Indication: PRODUCT USED FOR UNKNOWN INDICATION
     Dosage: 3 mg, Unknown/D
     Route: 065
  7. CYMBALTA [Concomitant]
     Indication: PRODUCT USED FOR UNKNOWN INDICATION
     Dosage: UNK
     Route: 065
  8. FLUDROCORTISONE [Concomitant]
     Indication: PRODUCT USED FOR UNKNOWN INDICATION
     Dosage: 1 mg, bid
     Route: 065
  9. MAGNESIUM [Concomitant]
     Indication: PRODUCT USED FOR UNKNOWN INDICATION
     Dosage: 500 mg, UID/QD
     Route: 065
  10. CALCIUM                            /00060701/ [Concomitant]
     Indication: PRODUCT USED FOR UNKNOWN INDICATION
     Dosage: 1200 mg, UID/QD
     Route: 065
  11. ZOMETA [Concomitant]
     Indication: PRODUCT USED FOR UNKNOWN INDICATION
     Dosage: Every 30 days
     Route: 042
  12. GLUCOSAMINE [Concomitant]
     Indication: PRODUCT USED FOR UNKNOWN INDICATION
     Dosage: 500 mg, UID/QD
     Route: 065
  13. VITAMIN B12                        /00056201/ [Concomitant]
     Indication: PRODUCT USED FOR UNKNOWN INDICATION
     Dosage: 600 mg, UID/QD
     Route: 065

REACTIONS (3)
  - Influenza like illness [Unknown]
  - Paraesthesia [Unknown]
  - Fatigue [Unknown]
